FAERS Safety Report 6993125-8 (Version None)
Quarter: 2010Q3

REPORT INFORMATION
  Report Type: 
  Country: None (occurrence: None)
  Receive Date: 20100917
  Receipt Date: 20100512
  Transmission Date: 20110219
  Serious: No
  Sender: FDA-Public Use
  Company Number: US-ASTRAZENECA-2010SE21947

PATIENT
  Sex: Male

DRUGS (2)
  1. SEROQUEL [Suspect]
     Route: 048
     Dates: start: 20020101, end: 20050101
  2. RISPERDAL [Suspect]
     Dates: start: 20020101, end: 20050101

REACTIONS (1)
  - ADVERSE EVENT [None]
